FAERS Safety Report 21847728 (Version 1)
Quarter: 2023Q1

REPORT INFORMATION
  Report Type: Spontaneous
  Country: DK (occurrence: DK)
  Receive Date: 20230111
  Receipt Date: 20230111
  Transmission Date: 20230418
  Serious: Yes (Other)
  Sender: FDA-Public Use
  Company Number: DK-BAXTER-2023BAX010263

PATIENT
  Sex: Female

DRUGS (79)
  1. DOXORUBICIN [Suspect]
     Active Substance: DOXORUBICIN
     Indication: Plasma cell myeloma
     Dosage: 21ST LINE THERAPY- JAN-2020 TO JUN-2020
     Route: 065
  2. CYCLOPHOSPHAMIDE [Suspect]
     Active Substance: CYCLOPHOSPHAMIDE
     Indication: Plasma cell myeloma
     Dosage: 1ST LINE THERAPY- OCT-2014 TO FEB-2015
     Route: 065
  3. CYCLOPHOSPHAMIDE [Suspect]
     Active Substance: CYCLOPHOSPHAMIDE
     Indication: Plasma cell myeloma
     Dosage: 8TH LINE THERAPY- SEP-2017 TO SEP-2017
     Route: 065
  4. CYCLOPHOSPHAMIDE [Suspect]
     Active Substance: CYCLOPHOSPHAMIDE
     Dosage: 9TH LINE THERAPY- SEP-2017 TO NOV-2017
     Route: 065
  5. CYCLOPHOSPHAMIDE [Suspect]
     Active Substance: CYCLOPHOSPHAMIDE
     Dosage: 13TH LINE THERAPY- MAR-2018 TO APR-2018
     Route: 065
  6. CYCLOPHOSPHAMIDE [Suspect]
     Active Substance: CYCLOPHOSPHAMIDE
     Dosage: 14TH LINE THERAPY- APR-2018 TO AUG-2018
     Route: 065
  7. CYCLOPHOSPHAMIDE [Suspect]
     Active Substance: CYCLOPHOSPHAMIDE
     Dosage: 17TH LINE THERAPY- JUN-2019 TO AUG-2019
     Route: 065
  8. CYCLOPHOSPHAMIDE [Suspect]
     Active Substance: CYCLOPHOSPHAMIDE
     Dosage: 21ST LINE THERAPY- JAN-2020 TO JUN-2020
     Route: 065
  9. BORTEZOMIB [Suspect]
     Active Substance: BORTEZOMIB
     Indication: Plasma cell myeloma
     Dosage: 1ST LINE THERAPY- OCT-2014 TO FEB-2015
     Route: 065
  10. BORTEZOMIB [Suspect]
     Active Substance: BORTEZOMIB
     Indication: Plasma cell myeloma
     Dosage: 6TH LINE THERAPY- JUL-2017 TO AUG-2017
     Route: 065
  11. BORTEZOMIB [Suspect]
     Active Substance: BORTEZOMIB
     Dosage: 16TH LINE THERAPY- MAY-2019 TO JUN-2019
     Route: 065
  12. BORTEZOMIB [Suspect]
     Active Substance: BORTEZOMIB
     Dosage: 21ST LINE THERAPY- JAN-2020 TO JUN-2020
     Route: 065
  13. DEXAMETHASONE [Suspect]
     Active Substance: DEXAMETHASONE
     Indication: Plasma cell myeloma
     Dosage: 1ST LINE THERAPY- OCT-2014 TO FEB-2015, VGPR
     Route: 065
  14. DEXAMETHASONE [Suspect]
     Active Substance: DEXAMETHASONE
     Indication: Plasma cell myeloma
     Dosage: 2ND LINE THERAPY- FEB-2016 TO FEB-2016
     Route: 065
  15. DEXAMETHASONE [Suspect]
     Active Substance: DEXAMETHASONE
     Dosage: 3RD LINE THERAPY- FEB-2016 TO SEP-2016
     Route: 065
  16. DEXAMETHASONE [Suspect]
     Active Substance: DEXAMETHASONE
     Dosage: 4TH LINE THERAPY- SEP-2016 TO MAR-2017
     Route: 065
  17. DEXAMETHASONE [Suspect]
     Active Substance: DEXAMETHASONE
     Dosage: 5TH LINE THERAPY- APR-2017 TO JUL-2017
     Route: 065
  18. DEXAMETHASONE [Suspect]
     Active Substance: DEXAMETHASONE
     Dosage: 6TH LINE THERAPY- JUL-2017 TO AUG-2017
     Route: 065
  19. DEXAMETHASONE [Suspect]
     Active Substance: DEXAMETHASONE
     Dosage: 7TH LINE THERAPY- AUG-2017 TO SEP-2017
     Route: 065
  20. DEXAMETHASONE [Suspect]
     Active Substance: DEXAMETHASONE
     Dosage: 8TH LINE THERAPY- SEP-2017 TO SEP-2017
     Route: 065
  21. DEXAMETHASONE [Suspect]
     Active Substance: DEXAMETHASONE
     Dosage: 9TH LINE THERAPY- SEP-2017 TO NOV-2017
     Route: 065
  22. DEXAMETHASONE [Suspect]
     Active Substance: DEXAMETHASONE
     Dosage: 10TH LINE THERAPY- NOV-2017 TO NOV-2017
     Route: 065
  23. DEXAMETHASONE [Suspect]
     Active Substance: DEXAMETHASONE
     Dosage: 11TH LINE THERAPY- NOV-2017 TO DEC-2017
     Route: 065
  24. DEXAMETHASONE [Suspect]
     Active Substance: DEXAMETHASONE
     Dosage: 12TH LINE THERAPY- DEC-2017 TO MAR-2018
     Route: 065
  25. DEXAMETHASONE [Suspect]
     Active Substance: DEXAMETHASONE
     Dosage: 13TH LINE THERAPY- MAR-2018 TO APR-2018
     Route: 065
  26. DEXAMETHASONE [Suspect]
     Active Substance: DEXAMETHASONE
     Dosage: 14TH LINE THERAPY- APR-2018 TO AUG-2018
     Route: 065
  27. DEXAMETHASONE [Suspect]
     Active Substance: DEXAMETHASONE
     Dosage: 15TH LINE THERAPY- NOV-2018 TO MAY-2019
     Route: 065
  28. DEXAMETHASONE [Suspect]
     Active Substance: DEXAMETHASONE
     Dosage: 16TH LINE THERAPY- MAY-2019 TO JUN-2019
     Route: 065
  29. DEXAMETHASONE [Suspect]
     Active Substance: DEXAMETHASONE
     Dosage: 18TH LINE THERAPY- AUG-2019 TO NOV-2019
     Route: 065
  30. DEXAMETHASONE [Suspect]
     Active Substance: DEXAMETHASONE
     Dosage: 20TH LINE THERAPY- JAN-2020 TO JAN-2020
     Route: 065
  31. DEXAMETHASONE [Suspect]
     Active Substance: DEXAMETHASONE
     Dosage: 21ST LINE THERAPY- JAN-2020 TO JUN-2020
     Route: 065
  32. LENALIDOMIDE [Suspect]
     Active Substance: LENALIDOMIDE
     Indication: Plasma cell myeloma
     Dosage: 2ND LINE THERAPY- FEB-2016 TO FEB-2016
     Route: 065
  33. LENALIDOMIDE [Suspect]
     Active Substance: LENALIDOMIDE
     Indication: Plasma cell myeloma
     Dosage: 14TH LINE THERAPY- APR-2018 TO AUG-2018
     Route: 065
  34. LENALIDOMIDE [Suspect]
     Active Substance: LENALIDOMIDE
     Dosage: 15TH LINE THERAPY- NOV-2018 TO MAY-2019
     Route: 065
  35. LENALIDOMIDE [Suspect]
     Active Substance: LENALIDOMIDE
     Dosage: 16TH LINE THERAPY- MAY-2019 TO JUN-2019
     Route: 065
  36. LENALIDOMIDE [Suspect]
     Active Substance: LENALIDOMIDE
     Dosage: 18TH LINE THERAPY- AUG-2019 TO NOV-2019
     Route: 065
  37. CARFILZOMIB [Suspect]
     Active Substance: CARFILZOMIB
     Indication: Plasma cell myeloma
     Dosage: 3RD LINE THERAPY- FEB-2016 TO SEP-2016
     Route: 065
  38. CARFILZOMIB [Suspect]
     Active Substance: CARFILZOMIB
     Dosage: 4TH LINE THERAPY- SEP-2016 TO MAR-2017
     Route: 065
  39. CARFILZOMIB [Suspect]
     Active Substance: CARFILZOMIB
     Dosage: 11TH LINE THERAPY- NOV-2017 TO DEC-2017
     Route: 065
  40. CARFILZOMIB [Suspect]
     Active Substance: CARFILZOMIB
     Dosage: 12TH LINE THERAPY- DEC-2017 TO MAR-2018
     Route: 065
  41. CARFILZOMIB [Suspect]
     Active Substance: CARFILZOMIB
     Dosage: 13TH LINE THERAPY- MAR-2018 TO APR-2018
     Route: 065
  42. CARFILZOMIB [Suspect]
     Active Substance: CARFILZOMIB
     Dosage: 14TH LINE THERAPY- APR-2018 TO AUG-2018
     Route: 065
  43. POMALIDOMIDE [Suspect]
     Active Substance: POMALIDOMIDE
     Indication: Plasma cell myeloma
     Dosage: 3RD LINE THERAPY- FEB-2016 TO SEP-2016
     Route: 065
  44. POMALIDOMIDE [Suspect]
     Active Substance: POMALIDOMIDE
     Dosage: 4TH LINE THERAPY- SEP-2016 TO MAR-2017
     Route: 065
  45. POMALIDOMIDE [Suspect]
     Active Substance: POMALIDOMIDE
     Dosage: 5TH LINE THERAPY- APR-2017 TO JUL-2017
     Route: 065
  46. POMALIDOMIDE [Suspect]
     Active Substance: POMALIDOMIDE
     Dosage: 6TH LINE THERAPY- JUL-2017 TO AUG-2017
     Route: 065
  47. POMALIDOMIDE [Suspect]
     Active Substance: POMALIDOMIDE
     Dosage: 7TH LINE THERAPY- AUG-2017 TO SEP-2017
     Route: 065
  48. POMALIDOMIDE [Suspect]
     Active Substance: POMALIDOMIDE
     Dosage: 20TH LINE THERAPY- JAN-2020 TO JAN-2020
     Route: 065
  49. POMALIDOMIDE [Suspect]
     Active Substance: POMALIDOMIDE
     Dosage: 21ST LINE THERAPY- JAN-2020 TO JUN-2020
     Route: 065
  50. DARATUMUMAB [Suspect]
     Active Substance: DARATUMUMAB
     Indication: Plasma cell myeloma
     Dosage: 4TH LINE THERAPY- SEP-2016 TO MAR-2017
     Route: 065
  51. DARATUMUMAB [Suspect]
     Active Substance: DARATUMUMAB
     Dosage: 5TH LINE THERAPY- APR-2017 TO JUL-2017
     Route: 065
  52. DARATUMUMAB [Suspect]
     Active Substance: DARATUMUMAB
     Dosage: 6TH LINE THERAPY- JUL-2017 TO AUG-2017
     Route: 065
  53. DARATUMUMAB [Suspect]
     Active Substance: DARATUMUMAB
     Dosage: 7TH LINE THERAPY- AUG-2017 TO SEP-2017
     Route: 065
  54. DARATUMUMAB [Suspect]
     Active Substance: DARATUMUMAB
     Dosage: 8TH LINE THERAPY- SEP-2017 TO SEP-2017
     Route: 065
  55. DARATUMUMAB [Suspect]
     Active Substance: DARATUMUMAB
     Dosage: 9TH LINE THERAPY- SEP-2017 TO NOV-2017
     Route: 065
  56. DARATUMUMAB [Suspect]
     Active Substance: DARATUMUMAB
     Dosage: 11TH LINE THERAPY- NOV-2017 TO DEC-2017
     Route: 065
  57. DARATUMUMAB [Suspect]
     Active Substance: DARATUMUMAB
     Dosage: 12TH LINE THERAPY- DEC-2017 TO MAR-2018
     Route: 065
  58. DARATUMUMAB [Suspect]
     Active Substance: DARATUMUMAB
     Dosage: 13TH LINE THERAPY- MAR-2018 TO APR-2018
     Route: 065
  59. DARATUMUMAB [Suspect]
     Active Substance: DARATUMUMAB
     Dosage: 15TH LINE THERAPY- NOV-2018 TO MAY-2019
     Route: 065
  60. DARATUMUMAB [Suspect]
     Active Substance: DARATUMUMAB
     Dosage: 16TH LINE THERAPY- MAY-2019 TO JUN-2019
     Route: 065
  61. DARATUMUMAB [Suspect]
     Active Substance: DARATUMUMAB
     Dosage: 17TH LINE THERAPY- JUN-2019 TO AUG-2019
     Route: 065
  62. DARATUMUMAB [Suspect]
     Active Substance: DARATUMUMAB
     Dosage: 18TH LINE THERAPY- AUG-2019 TO NOV-2019
     Route: 065
  63. DARATUMUMAB [Suspect]
     Active Substance: DARATUMUMAB
     Dosage: 19TH LINE THERAPY- DEC-2019 TO JAN-2020
     Route: 065
  64. DARATUMUMAB [Suspect]
     Active Substance: DARATUMUMAB
     Dosage: 21ST LINE THERAPY- JAN-2020 TO JUN-2020
     Route: 065
  65. IXAZOMIB [Suspect]
     Active Substance: IXAZOMIB
     Indication: Plasma cell myeloma
     Dosage: 7TH LINE THERAPY- AUG-2017 TO SEP-2017
     Route: 065
  66. PANOBINOSTAT [Suspect]
     Active Substance: PANOBINOSTAT
     Indication: Plasma cell myeloma
     Dosage: 8TH LINE THERAPY- SEP-2017 TO SEP-2017
     Route: 065
  67. VINCRISTINE [Suspect]
     Active Substance: VINCRISTINE
     Indication: Plasma cell myeloma
     Dosage: 8TH LINE THERAPY- SEP-2017 TO SEP-2017
     Route: 065
  68. VENETOCLAX [Suspect]
     Active Substance: VENETOCLAX
     Indication: Plasma cell myeloma
     Dosage: 10TH LINE THERAPY- NOV-2017 TO NOV-2017
     Route: 065
  69. VENETOCLAX [Suspect]
     Active Substance: VENETOCLAX
     Dosage: 11TH LINE THERAPY- NOV-2017 TO DEC-2017
     Route: 065
  70. PEMBROLIZUMAB [Suspect]
     Active Substance: PEMBROLIZUMAB
     Indication: Plasma cell myeloma
     Dosage: 14TH LINE THERAPY- APR-2018 TO AUG-2018
     Route: 065
  71. PEMBROLIZUMAB [Suspect]
     Active Substance: PEMBROLIZUMAB
     Dosage: 15TH LINE THERAPY- NOV-2018 TO MAY-2019
     Route: 065
  72. PEMBROLIZUMAB [Suspect]
     Active Substance: PEMBROLIZUMAB
     Dosage: 16TH LINE THERAPY- MAY-2019 TO JUN-2019
     Route: 065
  73. ETOPOSIDE [Suspect]
     Active Substance: ETOPOSIDE
     Indication: Plasma cell myeloma
     Dosage: 17TH LINE THERAPY- JUN-2019 TO AUG-2019
     Route: 065
  74. PREDNISOLONE [Suspect]
     Active Substance: PREDNISOLONE
     Indication: Plasma cell myeloma
     Dosage: 17TH LINE THERAPY- JUN-2019 TO AUG-2019
     Route: 065
  75. AZACITIDINE [Suspect]
     Active Substance: AZACITIDINE
     Indication: Plasma cell myeloma
     Dosage: 18TH LINE THERAPY- AUG-2019 TO NOV-2019
     Route: 065
  76. PEGASYS [Suspect]
     Active Substance: PEGINTERFERON ALFA-2A
     Indication: Plasma cell myeloma
     Dosage: 19TH LINE THERAPY- DEC-2019 TO JAN-2020
     Route: 065
  77. ELOTUZUMAB [Suspect]
     Active Substance: ELOTUZUMAB
     Indication: Plasma cell myeloma
     Dosage: 20TH LINE THERAPY- JAN-2020 TO JAN-2020
     Route: 065
  78. BELANTAMAB MAFODOTIN [Suspect]
     Active Substance: BELANTAMAB MAFODOTIN
     Indication: Plasma cell myeloma
     Dosage: 22ND LINE THERAPY- JUN-2020 TO OCT-2022
     Route: 065
  79. ACYCLOVIR [Concomitant]
     Active Substance: ACYCLOVIR
     Indication: Product used for unknown indication
     Dosage: UNK
     Route: 065

REACTIONS (6)
  - Plasma cell myeloma [Recovered/Resolved]
  - Plasma cell myeloma [Recovered/Resolved]
  - Therapy partial responder [Unknown]
  - Central nervous system lesion [Unknown]
  - Bone disorder [Unknown]
  - Disease progression [Unknown]
